FAERS Safety Report 14112524 (Version 1)
Quarter: 2017Q4

REPORT INFORMATION
  Report Type: Spontaneous
  Country: AU (occurrence: AU)
  Receive Date: 20171020
  Receipt Date: 20171020
  Transmission Date: 20180321
  Serious: Yes (Other)
  Sender: FDA-Public Use
  Company Number: AU-009507513-1710AUS009800

PATIENT
  Age: 50 Year
  Sex: Female

DRUGS (5)
  1. DEXAMETHASONE. [Suspect]
     Active Substance: DEXAMETHASONE
     Dosage: 20 MG, ON DAYS 1, 2, 4, 5, 8, 9, 11 AND 12
     Route: 048
     Dates: start: 20170602
  2. SPIRIVA [Concomitant]
     Active Substance: TIOTROPIUM BROMIDE MONOHYDRATE
     Indication: PROPHYLAXIS
     Dosage: TOTAL DAILY DOSE: 18 MICROGRAM, PRN
     Route: 048
     Dates: start: 2006
  3. DEXAMETHASONE. [Suspect]
     Active Substance: DEXAMETHASONE
     Indication: PLASMA CELL MYELOMA
     Dosage: UNK
     Route: 048
     Dates: start: 200603, end: 2006
  4. SERETIDE [Concomitant]
     Active Substance: FLUTICASONE PROPIONATE\SALMETEROL XINAFOATE
     Indication: PROPHYLAXIS
     Dosage: TOTAL DAILY DOSE: 2 PUFF, PRN
     Route: 048
     Dates: start: 2006
  5. VALTREX [Concomitant]
     Active Substance: VALACYCLOVIR HYDROCHLORIDE
     Indication: PROPHYLAXIS
     Dosage: 500 MG, QD
     Route: 048
     Dates: start: 2006

REACTIONS (16)
  - Neuropathy peripheral [Unknown]
  - Regurgitation [Unknown]
  - Anxiety [Unknown]
  - Depression [Unknown]
  - Foot deformity [Unknown]
  - Osteonecrosis of jaw [Unknown]
  - Hypogammaglobulinaemia [Unknown]
  - Pain [Unknown]
  - Muscle spasms [Unknown]
  - Cardiac valve disease [Unknown]
  - Constipation [Unknown]
  - Nausea [Unknown]
  - Hypertension [Unknown]
  - Pneumonia [Unknown]
  - Gastrooesophageal reflux disease [Unknown]
  - Bone marrow disorder [Unknown]

NARRATIVE: CASE EVENT DATE: 2006
